FAERS Safety Report 4809287-4 (Version None)
Quarter: 2005Q4

REPORT INFORMATION
  Report Type: 
  Country: None (occurrence: None)
  Receive Date: 20051021
  Receipt Date: 20030613
  Transmission Date: 20060501
  Serious: Yes (Hospitalization, Other)
  Sender: FDA-Public Use
  Company Number: PHBS2003NZ14814

PATIENT
  Sex: Male

DRUGS (1)
  1. LAMISIL [Suspect]
     Indication: TINEA PEDIS
     Dosage: BID, TOPICAL
     Route: 061

REACTIONS (5)
  - CELLULITIS [None]
  - LOCALISED INFECTION [None]
  - PAIN IN EXTREMITY [None]
  - RASH VESICULAR [None]
  - SKIN INFLAMMATION [None]
